FAERS Safety Report 5001559-6 (Version None)
Quarter: 2006Q2

REPORT INFORMATION
  Report Type: 
  Country: None (occurrence: None)
  Receive Date: 20060515
  Receipt Date: 20060502
  Transmission Date: 20061013
  Serious: Yes (Hospitalization)
  Sender: FDA-Public Use
  Company Number: IT-JNJFOC-20060400790

PATIENT
  Sex: Male
  Weight: 65 kg

DRUGS (5)
  1. REOPRO [Suspect]
     Dosage: 4.0 ML IN 50 ML DILUENT AT 3.3 ML/HOUR, TOTAL INFUSION GIVEN 39.6 ML (INFUSION GIVEN COMPLETELY)
     Route: 042
  2. REOPRO [Suspect]
     Route: 042
  3. RETEPLASE [Suspect]
     Dosage: INFUSION GIVEN COMPLETELY
     Route: 042
  4. HEPARIN [Concomitant]
     Route: 042
  5. HEPARIN [Concomitant]
     Route: 042

REACTIONS (2)
  - GASTROINTESTINAL HAEMORRHAGE [None]
  - MALLORY-WEISS SYNDROME [None]
